FAERS Safety Report 12848271 (Version 1)
Quarter: 2016Q4

REPORT INFORMATION
  Report Type: Spontaneous
  Country: US (occurrence: US)
  Receive Date: 20161014
  Receipt Date: 20161014
  Transmission Date: 20170207
  Serious: No
  Sender: FDA-Public Use
  Company Number: US-JNJFOC-20160721770

PATIENT
  Age: 17 Month
  Sex: Female

DRUGS (1)
  1. CHILDRENS TYLENOL [Suspect]
     Active Substance: ACETAMINOPHEN
     Indication: ACCIDENTAL EXPOSURE TO PRODUCT
     Dosage: 1/3 OF BOTTLE
     Route: 048
     Dates: start: 20160725

REACTIONS (4)
  - Accidental exposure to product [Unknown]
  - Product container issue [Unknown]
  - Accidental exposure to product by child [None]
  - Product closure issue [None]

NARRATIVE: CASE EVENT DATE: 20160725
